FAERS Safety Report 9605625 (Version 2)
Quarter: 2013Q4

REPORT INFORMATION
  Report Type: Spontaneous
  Country: BR (occurrence: BR)
  Receive Date: 20131008
  Receipt Date: 20131008
  Transmission Date: 20140711
  Serious: Yes (Hospitalization, Other)
  Sender: FDA-Public Use
  Company Number: BR-ASTRAZENECA-2008UW28098

PATIENT
  Age: 15255 Day
  Sex: Female
  Weight: 70 kg

DRUGS (4)
  1. ZOLADEX LA [Suspect]
     Indication: ENDOMETRIOSIS
     Route: 058
     Dates: start: 20081211
  2. ZOLADEX LA [Suspect]
     Indication: ENDOMETRIOSIS
     Route: 058
     Dates: start: 2010, end: 201211
  3. UNKNOWN [Suspect]
     Route: 065
  4. PURAN T4 [Concomitant]
     Indication: GOITRE
     Route: 048
     Dates: start: 2010

REACTIONS (5)
  - Goitre [Unknown]
  - Spleen disorder [Not Recovered/Not Resolved]
  - Vaginal haemorrhage [Recovered/Resolved]
  - Amenorrhoea [Recovered/Resolved]
  - Menstrual disorder [Recovered/Resolved]
